FAERS Safety Report 8118266-3 (Version None)
Quarter: 2012Q1

REPORT INFORMATION
  Report Type: 
  Country: None (occurrence: None)
  Receive Date: 20120207
  Receipt Date: 20120130
  Transmission Date: 20120608
  Serious: Yes (Hospitalization)
  Sender: FDA-Public Use
  Company Number: US-ASTELLAS-2012US001296

PATIENT
  Sex: Female

DRUGS (3)
  1. VESICARE [Suspect]
     Indication: URINARY TRACT DISORDER
     Dosage: 5 MG, UNKNOWN/D
     Route: 048
  2. VESICARE [Interacting]
     Dosage: 10 MG, UNKNOWN/D
     Route: 048
  3. UNSPECIFIED PARKINSONS MEDICATIONS [Interacting]
     Indication: PARKINSON'S DISEASE
     Dosage: UNK
     Route: 065

REACTIONS (4)
  - DRUG INEFFECTIVE [None]
  - DRUG LEVEL INCREASED [None]
  - DRUG INTERACTION [None]
  - MENTAL STATUS CHANGES [None]
